FAERS Safety Report 10234920 (Version 1)
Quarter: 2014Q2

REPORT INFORMATION
  Report Type: Spontaneous
  Country: US (occurrence: None)
  Receive Date: 20140520
  Receipt Date: 20140520
  Transmission Date: 20141212
  Serious: Yes (Hospitalization)
  Sender: FDA-Public Use
  Company Number: 2013PL000131

PATIENT
  Age: 44 Year
  Sex: Female
  Weight: 73.5 kg

DRUGS (7)
  1. AZATHIOPRINE (AZATHIOPRINE) [Suspect]
     Indication: CROHN^S DISEASE
     Dates: start: 201305
  2. HUMIRA [Suspect]
     Indication: CROHN^S DISEASE
     Route: 058
     Dates: start: 201212, end: 201212
  3. RIFAMPIN (RIFAMPICIN) (RIFAMPICIN) [Concomitant]
  4. VITAMIN D (ERGOCALCIFEROL) [Concomitant]
  5. VITAMIN B6 (PYRIDOXINE HYDROCHLORIDE) [Concomitant]
  6. VITAMIN E (TOCOPHEROL) [Concomitant]
  7. VITAMIN B (VITAMIN B COMPLEX) [Concomitant]

REACTIONS (7)
  - Joint swelling [None]
  - Arthralgia [None]
  - Injection site pruritus [None]
  - Drug ineffective [None]
  - Diarrhoea [None]
  - Abdominal distension [None]
  - Malignant melanoma [None]
